FAERS Safety Report 19017171 (Version 3)
Quarter: 2021Q2

REPORT INFORMATION
  Report Type: Spontaneous
  Country: US (occurrence: US)
  Receive Date: 20210317
  Receipt Date: 20210423
  Transmission Date: 20210717
  Serious: No
  Sender: FDA-Public Use
  Company Number: US-TEVA-2021-US-1889189

PATIENT
  Age: 37 Year
  Sex: Female

DRUGS (2)
  1. ADIPEX?P [Suspect]
     Active Substance: PHENTERMINE HYDROCHLORIDE
     Route: 048
     Dates: start: 202101
  2. ADIPEX?P [Suspect]
     Active Substance: PHENTERMINE HYDROCHLORIDE
     Indication: WEIGHT DECREASED
     Dosage: THERAPY DATES: ABOUT 7 YEARS
     Route: 048

REACTIONS (10)
  - Therapeutic reaction time decreased [Not Recovered/Not Resolved]
  - Breath odour [Unknown]
  - Gastrointestinal motility disorder [Unknown]
  - Therapeutic product effect decreased [Not Recovered/Not Resolved]
  - Inappropriate schedule of product administration [Unknown]
  - Product taste abnormal [Unknown]
  - Dehydration [Unknown]
  - Ill-defined disorder [Unknown]
  - Product use issue [Unknown]
  - Drug ineffective [Unknown]

NARRATIVE: CASE EVENT DATE: 202011
